FAERS Safety Report 15369217 (Version 5)
Quarter: 2019Q2

REPORT INFORMATION
  Report Type: Report from Study
  Country: IT (occurrence: IT)
  Receive Date: 20180911
  Receipt Date: 20190402
  Transmission Date: 20190711
  Serious: Yes (Hospitalization, Other)
  Sender: FDA-Public Use
  Company Number: IT-ACCORD-071323

PATIENT
  Age: 65 Year
  Sex: Male

DRUGS (19)
  1. OMEPRAZOLE. [Interacting]
     Active Substance: OMEPRAZOLE
     Indication: PRODUCT USED FOR UNKNOWN INDICATION
     Route: 065
  2. DEXTROPROPOXYPHENE/DEXTROPROPOXYPHENE HYDROCHLORI/DEXTROPROPOXYPHENE NAPSILATE [Interacting]
     Active Substance: PROPOXYPHENE
     Indication: PRODUCT USED FOR UNKNOWN INDICATION
     Route: 065
  3. ATENOLOL/ATENOLOL HYDROCHLORIDE [Interacting]
     Active Substance: ATENOLOL HYDROCHLORIDE
     Indication: PRODUCT USED FOR UNKNOWN INDICATION
     Dosage: UNK
  4. ROSUVASTATIN. [Interacting]
     Active Substance: ROSUVASTATIN
     Indication: PRODUCT USED FOR UNKNOWN INDICATION
     Dosage: UNK
     Route: 048
  5. METFORMIN [Interacting]
     Active Substance: METFORMIN HYDROCHLORIDE
     Indication: PRODUCT USED FOR UNKNOWN INDICATION
     Dosage: UNK
  6. INSULIN [Interacting]
     Active Substance: INSULIN NOS
     Indication: PRODUCT USED FOR UNKNOWN INDICATION
     Dosage: UNK
  7. TAMSULOSIN/TAMSULOSIN HYDROCHLORIDE [Interacting]
     Active Substance: TAMSULOSIN HYDROCHLORIDE
     Indication: PRODUCT USED FOR UNKNOWN INDICATION
     Dosage: UNK
     Route: 065
  8. PARACETAMOL [Interacting]
     Active Substance: ACETAMINOPHEN
     Indication: PRODUCT USED FOR UNKNOWN INDICATION
     Route: 065
  9. LEVETIRACETAM. [Suspect]
     Active Substance: LEVETIRACETAM
     Indication: PRODUCT USED FOR UNKNOWN INDICATION
     Dosage: UNK
     Route: 065
  10. LOSARTAN. [Interacting]
     Active Substance: LOSARTAN
     Indication: PRODUCT USED FOR UNKNOWN INDICATION
     Dosage: UNK
  11. CARBAMAZEPINE. [Interacting]
     Active Substance: CARBAMAZEPINE
     Indication: EPILEPSY
     Dosage: REGIMEN 1
  12. TRIVALENT INACTIVATED SUBUNIT INFLUENZA VIRUS VACCINE [Interacting]
     Active Substance: INFLUENZA VIRUS VACCINE TRIVALENT TYPE A+B
     Indication: IMMUNISATION
  13. CODEINE [Interacting]
     Active Substance: CODEINE
     Indication: PRODUCT USED FOR UNKNOWN INDICATION
     Dosage: UNK
     Route: 065
  14. LISIHEXAL COMP [Interacting]
     Active Substance: HYDROCHLOROTHIAZIDE\LISINOPRIL
     Indication: PRODUCT USED FOR UNKNOWN INDICATION
     Dosage: UNK
     Route: 048
  15. INFLUENZA H1N1 VACCINE NOS [Interacting]
     Active Substance: INFLUENZA VIRUS VACCINE, SWINE
     Indication: PRODUCT USED FOR UNKNOWN INDICATION
     Route: 065
  16. SIMVASTATIN. [Interacting]
     Active Substance: SIMVASTATIN
     Indication: PRODUCT USED FOR UNKNOWN INDICATION
     Route: 065
  17. INFLUENZA VACCINE [Interacting]
     Active Substance: INFLUENZA VIRUS VACCINE
     Indication: PRODUCT USED FOR UNKNOWN INDICATION
  18. AMLODIPINE [Interacting]
     Active Substance: AMLODIPINE BESYLATE
     Indication: PRODUCT USED FOR UNKNOWN INDICATION
     Dosage: UNK
  19. DICLOFENAC [Interacting]
     Active Substance: DICLOFENAC
     Indication: PRODUCT USED FOR UNKNOWN INDICATION
     Route: 065

REACTIONS (16)
  - Rhabdomyolysis [Unknown]
  - Drug interaction [Unknown]
  - Respiratory failure [Unknown]
  - Leukocytosis [Unknown]
  - Infection [None]
  - Pain [Unknown]
  - Paraplegia [Unknown]
  - Paraesthesia [Unknown]
  - Loss of personal independence in daily activities [Unknown]
  - Diabetic neuropathy [Unknown]
  - Plasmapheresis [Unknown]
  - Toxicity to various agents [Unknown]
  - Coordination abnormal [Unknown]
  - Mobility decreased [Unknown]
  - Sensory disturbance [Unknown]
  - Guillain-Barre syndrome [Unknown]
